FAERS Safety Report 5726906-9 (Version None)
Quarter: 2008Q2

REPORT INFORMATION
  Report Type: 
  Country: None (occurrence: None)
  Receive Date: 20080502
  Receipt Date: 20080424
  Transmission Date: 20081010
  Serious: Yes (Disabling, Congenital Anomaly, Other)
  Sender: FDA-Public Use
  Company Number: GB-ABBOTT-05P-167-0311356-00

PATIENT
  Sex: Female

DRUGS (1)
  1. VALPROATE SODIUM [Suspect]
     Indication: DRUG EXPOSURE DURING PREGNANCY
     Dosage: 1.5G/2G (UNIT DOSE)
     Route: 064

REACTIONS (40)
  - ANAL SPHINCTER ATONY [None]
  - ARNOLD-CHIARI MALFORMATION [None]
  - CEREBRAL VENTRICLE DILATATION [None]
  - COGNITIVE DISORDER [None]
  - CONGENITAL EYELID MALFORMATION [None]
  - CONGENITAL HAND MALFORMATION [None]
  - CONGENITAL JAW MALFORMATION [None]
  - CONGENITAL NOSE MALFORMATION [None]
  - CONGENITAL ORAL MALFORMATION [None]
  - CRANIAL SUTURES WIDENING [None]
  - DELAYED FONTANELLE CLOSURE [None]
  - DEVELOPMENTAL DELAY [None]
  - DISTURBANCE IN ATTENTION [None]
  - DYSMORPHISM [None]
  - ELBOW DEFORMITY [None]
  - ENCEPHALOCELE [None]
  - ENLARGED UVULA [None]
  - EPILEPSY [None]
  - EXPRESSIVE LANGUAGE DISORDER [None]
  - EYELID PTOSIS [None]
  - FAECAL INCONTINENCE [None]
  - FOETAL ANTICONVULSANT SYNDROME [None]
  - FOOT DEFORMITY [None]
  - HYDRONEPHROSIS [None]
  - INTRACRANIAL HYPOTENSION [None]
  - LIGAMENT LAXITY [None]
  - MENINGOMYELOCELE [None]
  - MUSCULAR WEAKNESS [None]
  - NEURAL TUBE DEFECT [None]
  - NEUROGENIC BLADDER [None]
  - OTITIS MEDIA [None]
  - SCOLIOSIS [None]
  - SENSORY DISTURBANCE [None]
  - SHUNT MALFUNCTION [None]
  - SKULL MALFORMATION [None]
  - SPEECH DISORDER DEVELOPMENTAL [None]
  - SPINA BIFIDA [None]
  - STRABISMUS [None]
  - URINARY INCONTINENCE [None]
  - WHEELCHAIR USER [None]
